FAERS Safety Report 5723958-7 (Version None)
Quarter: 2008Q2

REPORT INFORMATION
  Report Type: 
  Country: None (occurrence: None)
  Receive Date: 20080428
  Receipt Date: 20080415
  Transmission Date: 20081010
  Serious: Yes (Life-Threatening, Hospitalization)
  Sender: FDA-Public Use
  Company Number: 163-21880-08041210

PATIENT
  Age: 69 Year
  Sex: Female

DRUGS (2)
  1. REVLIMID [Suspect]
     Indication: AMYLOIDOSIS
     Dosage: 15 MG, 1 IN 1 D, ORAL
     Route: 048
     Dates: start: 20080228
  2. MORPHINE [Suspect]
     Indication: DRUG USE FOR UNKNOWN INDICATION
     Dosage: 2 MG, INTRAMUSCULAR
     Route: 030

REACTIONS (3)
  - BRADYCARDIA [None]
  - RESPIRATORY ARREST [None]
  - RESPIRATORY FAILURE [None]
